FAERS Safety Report 10717769 (Version 4)
Quarter: 2015Q2

REPORT INFORMATION
  Report Type: Spontaneous
  Country: JP (occurrence: JP)
  Receive Date: 20150116
  Receipt Date: 20150527
  Transmission Date: 20150821
  Serious: Yes (Hospitalization, Disabling)
  Sender: FDA-Public Use
  Company Number: JP-BRISTOL-MYERS SQUIBB COMPANY-BMS-2015-001706

PATIENT
  Age: 81 Year
  Sex: Male
  Weight: 43 kg

DRUGS (3)
  1. ERBITUX [Suspect]
     Active Substance: CETUXIMAB
     Indication: TONGUE NEOPLASM MALIGNANT STAGE UNSPECIFIED
     Dosage: 400 MG/M2, QWK
     Route: 041
     Dates: start: 20141018, end: 20141119
  2. ERBITUX [Suspect]
     Active Substance: CETUXIMAB
     Indication: HYPOPHARYNGEAL CANCER
  3. CUBICIN [Suspect]
     Active Substance: DAPTOMYCIN
     Indication: INFECTION
     Dosage: 150 MG, QD
     Route: 041
     Dates: start: 20141205, end: 20141210

REACTIONS (4)
  - Interstitial lung disease [Recovering/Resolving]
  - Radiation skin injury [Recovering/Resolving]
  - Mechanical ileus [Recovered/Resolved]
  - Impaired healing [Recovered/Resolved with Sequelae]

NARRATIVE: CASE EVENT DATE: 20141112
